FAERS Safety Report 22973328 (Version 3)
Quarter: 2023Q4

REPORT INFORMATION
  Report Type: Spontaneous
  Country: US (occurrence: US)
  Receive Date: 20230922
  Receipt Date: 20231213
  Transmission Date: 20240110
  Serious: No
  Sender: FDA-Public Use
  Company Number: US-BRISTOL-MYERS SQUIBB COMPANY-2023-134963

PATIENT
  Age: 72 Year
  Sex: Female
  Weight: 63.5 kg

DRUGS (2)
  1. REVLIMID [Suspect]
     Active Substance: LENALIDOMIDE
     Indication: Plasma cell myeloma
     Route: 048
     Dates: start: 20220701
  2. REVLIMID [Suspect]
     Active Substance: LENALIDOMIDE
     Route: 048

REACTIONS (9)
  - Fatigue [Not Recovered/Not Resolved]
  - Muscle spasms [Unknown]
  - Muscle tightness [Unknown]
  - Dizziness [Unknown]
  - Tinnitus [Unknown]
  - Pruritus [Not Recovered/Not Resolved]
  - Erythema [Not Recovered/Not Resolved]
  - Diarrhoea [Not Recovered/Not Resolved]
  - Nasopharyngitis [Recovering/Resolving]
